FAERS Safety Report 12094614 (Version 1)
Quarter: 2016Q1

REPORT INFORMATION
  Report Type: Report from Study
  Country: US (occurrence: US)
  Receive Date: 20160219
  Receipt Date: 20160219
  Transmission Date: 20160526
  Serious: Yes (Disabling, Other)
  Sender: FDA-Public Use
  Company Number: US-AMGEN-USASL2016019574

PATIENT
  Age: 73 Year
  Sex: Female

DRUGS (1)
  1. ENBREL [Suspect]
     Active Substance: ETANERCEPT
     Indication: RHEUMATOID ARTHRITIS
     Dosage: UNK UNK, UNK
     Route: 065
     Dates: start: 20131208, end: 2015

REACTIONS (7)
  - Foot operation [Unknown]
  - Spinal operation [Unknown]
  - Arthropathy [Unknown]
  - Disability [Unknown]
  - Wrist surgery [Unknown]
  - Knee operation [Unknown]
  - Shoulder arthroplasty [Unknown]
